FAERS Safety Report 21772657 (Version 5)
Quarter: 2023Q2

REPORT INFORMATION
  Report Type: Report from Study
  Country: US (occurrence: US)
  Receive Date: 20221223
  Receipt Date: 20230424
  Transmission Date: 20230721
  Serious: Yes (Other)
  Sender: FDA-Public Use
  Company Number: US-002147023-NVSC2022US294635

PATIENT
  Age: 72 Year
  Sex: Female

DRUGS (5)
  1. ENTRESTO [Suspect]
     Active Substance: SACUBITRIL\VALSARTAN
     Indication: Product used for unknown indication
     Dosage: UNK
     Route: 065
  2. ENTRESTO [Suspect]
     Active Substance: SACUBITRIL\VALSARTAN
     Dosage: 1 DOSAGE FORM, BID (49/51 MG)
     Route: 048
  3. ENTRESTO [Suspect]
     Active Substance: SACUBITRIL\VALSARTAN
     Dosage: 1 DOSAGE FORM, BID (97/103 MG)
     Route: 048
  4. ENTRESTO [Suspect]
     Active Substance: SACUBITRIL\VALSARTAN
     Dosage: 1 DOSAGE FORM, QD (49/51 MG)
     Route: 048
     Dates: start: 20221230
  5. ENTRESTO [Suspect]
     Active Substance: SACUBITRIL\VALSARTAN
     Dosage: 2 DOSAGE FORM (49/51 MG)
     Route: 065

REACTIONS (18)
  - Cardiac failure [Unknown]
  - Atrial fibrillation [Recovering/Resolving]
  - Dizziness [Recovered/Resolved]
  - Somnolence [Recovered/Resolved]
  - Hypoaesthesia [Unknown]
  - Joint swelling [Unknown]
  - Weight fluctuation [Unknown]
  - Memory impairment [Unknown]
  - Ill-defined disorder [Unknown]
  - Balance disorder [Recovering/Resolving]
  - Pruritus [Unknown]
  - Dizziness [Unknown]
  - Extrasystoles [Unknown]
  - Fatigue [Unknown]
  - Asthenia [Recovering/Resolving]
  - Hypotension [Unknown]
  - Rash [Unknown]
  - Inappropriate schedule of product administration [Unknown]

NARRATIVE: CASE EVENT DATE: 20230104
